FAERS Safety Report 7980748-2 (Version None)
Quarter: 2011Q4

REPORT INFORMATION
  Report Type: 
  Country: None (occurrence: None)
  Receive Date: 20111214
  Receipt Date: 20111202
  Transmission Date: 20120403
  Serious: No
  Sender: FDA-Public Use
  Company Number: US-ELI_LILLY_AND_COMPANY-US201110001083

PATIENT
  Sex: Female

DRUGS (3)
  1. FORTEO [Suspect]
     Indication: OSTEOPOROSIS
     Dosage: 20 UG, QD
     Route: 065
  2. XANAX [Concomitant]
     Indication: INSOMNIA
     Dosage: 2 MG, UNKNOWN
  3. BONIVA [Concomitant]
     Dosage: UNK

REACTIONS (7)
  - SOMNAMBULISM [None]
  - PAIN IN EXTREMITY [None]
  - WRIST FRACTURE [None]
  - MUSCULOSKELETAL STIFFNESS [None]
  - OSTEOPOROSIS [None]
  - FALL [None]
  - BACK PAIN [None]
